FAERS Safety Report 5104829-6 (Version None)
Quarter: 2006Q3

REPORT INFORMATION
  Report Type: 
  Country: None (occurrence: None)
  Receive Date: 20060911
  Receipt Date: 20060911
  Transmission Date: 20061208
  Serious: Yes (Death)
  Sender: FDA-Public Use
  Company Number: None

PATIENT
  Age: 59 Year
  Sex: Female

DRUGS (1)
  1. ZOSYN [Suspect]
     Indication: ABSCESS LIMB
     Dosage: 3.375 MG    EVERY 6 HOURS    IV   (ONE DOSE)
     Route: 042
     Dates: start: 20060805, end: 20060805

REACTIONS (4)
  - DYSPNOEA [None]
  - PARAESTHESIA [None]
  - PRURITUS [None]
  - SALIVARY HYPERSECRETION [None]
